FAERS Safety Report 7068991-0 (Version None)
Quarter: 2010Q4

REPORT INFORMATION
  Report Type: 
  Country: None (occurrence: None)
  Receive Date: 20101020
  Receipt Date: 20101007
  Transmission Date: 20110411
  Serious: Yes (Hospitalization)
  Sender: FDA-Public Use
  Company Number: 2010MA003572

PATIENT
  Age: 79 Year
  Sex: Male

DRUGS (16)
  1. RAMIPRIL [Suspect]
     Indication: HYPERTENSION
     Dosage: 5 MG;QD;PO
     Route: 048
     Dates: end: 20100714
  2. BISOPROLOL (BISOPROLOL) [Suspect]
     Indication: HYPERTENSION
     Dosage: 5 MG;QD;PO
     Route: 048
     Dates: end: 20100714
  3. IMPUGAN (FUROSEMIDE) [Suspect]
     Indication: PRODUCT USED FOR UNKNOWN INDICATION
     Dosage: 40 MG;QD;PO
     Route: 048
     Dates: end: 20100714
  4. OMEPRAZOLE [Concomitant]
  5. METFORMIN HCL [Concomitant]
  6. SIMVASTATIN [Concomitant]
  7. ACETAMINOPHEN [Concomitant]
  8. PRIMPERAN [Concomitant]
  9. LAXOBERAL [Concomitant]
  10. SUSCARD [Concomitant]
  11. LAKTULOS [Concomitant]
  12. IMDUR [Concomitant]
  13. TROMBYL [Concomitant]
  14. EFFEXOR [Concomitant]
  15. OXYCONTIN [Concomitant]
  16. PREV MEDS [Concomitant]

REACTIONS (5)
  - BLOOD PRESSURE DIASTOLIC DECREASED [None]
  - RENAL IMPAIRMENT [None]
  - SINUS BRADYCARDIA [None]
  - SYNCOPE [None]
  - UNEVALUABLE EVENT [None]
